FAERS Safety Report 9613285 (Version 3)
Quarter: 2013Q4

REPORT INFORMATION
  Report Type: Spontaneous
  Country: BE (occurrence: None)
  Receive Date: 20130923
  Receipt Date: 20131104
  Transmission Date: 20140711
  Serious: Yes (Other)
  Sender: FDA-Public Use
  Company Number: 2013037962

PATIENT
  Age: 66 Year
  Sex: Female

DRUGS (12)
  1. HIZENTRA [Suspect]
     Indication: CHRONIC FATIGUE SYNDROME
     Dosage: 5 G 1X/WEEK?
     Route: 058
     Dates: start: 20130514, end: 20131004
  2. MELATONEX (MELATONEX) [Concomitant]
  3. DEANXIT/00428501/(DEANXIT/00428501/) [Concomitant]
  4. CLOZAN (CLOTIAZEPAM) [Concomitant]
  5. ZOLEPIDEM (ZOLPIDEM) [Concomitant]
  6. DAKAR (LANSOPRAZOLE) [Concomitant]
  7. BETASERC (BETAHISTINE HYDROCHLORIDE) [Concomitant]
  8. HYDROCORTISONE (HYDROCORTISONE) [Concomitant]
  9. DEHYDROEPIANDROSTERONE (PRASTERONE) [Concomitant]
  10. SYMBIOFLOR (ESCHERICHIA COLI) [Concomitant]
  11. POTASSIUM (POTASSIUM) [Concomitant]
  12. VITAMIN D (ERGOCALCIFEROL) [Concomitant]

REACTIONS (7)
  - Migraine [None]
  - Injection site rash [None]
  - Myalgia [None]
  - Chest pain [None]
  - Injection site irritation [None]
  - Injection site erythema [None]
  - Off label use [None]
